FAERS Safety Report 15052305 (Version 1)
Quarter: 2018Q2

REPORT INFORMATION
  Report Type: Spontaneous
  Country: US (occurrence: US)
  Receive Date: 20180622
  Receipt Date: 20180622
  Transmission Date: 20180711
  Serious: No
  Sender: FDA-Public Use
  Company Number: US-DENDREON PHARMACEUTICALS LLC-2017DEN000602

PATIENT
  Sex: Male

DRUGS (2)
  1. PROVENGE [Suspect]
     Active Substance: SIPULEUCEL-T
     Indication: PRODUCT USED FOR UNKNOWN INDICATION
     Route: 065
     Dates: start: 201610
  2. XTANDI [Suspect]
     Active Substance: ENZALUTAMIDE
     Indication: METASTASES TO PROSTATE
     Dates: start: 201610

REACTIONS (7)
  - Musculoskeletal pain [Unknown]
  - Back pain [Unknown]
  - Epistaxis [Unknown]
  - Dyspnoea [Unknown]
  - Muscle tightness [Unknown]
  - Limb asymmetry [Unknown]
  - Chest discomfort [Unknown]

NARRATIVE: CASE EVENT DATE: 2017
